FAERS Safety Report 4429887-3 (Version None)
Quarter: 2004Q3

REPORT INFORMATION
  Report Type: 
  Country: None (occurrence: None)
  Receive Date: 20040817
  Receipt Date: 20040802
  Transmission Date: 20050211
  Serious: Yes (Death, Hospitalization)
  Sender: FDA-Public Use
  Company Number: 000994

PATIENT
  Age: 55 Year
  Sex: Male
  Weight: 64.2 kg

DRUGS (17)
  1. RITUXAN [Suspect]
     Indication: NON-HODGKIN'S LYMPHOMA
     Dosage: SEE IMAGE, INTRAVENOUS
     Route: 042
     Dates: start: 20040317, end: 20040407
  2. ZEVALIN [Suspect]
     Indication: NON-HODGKIN'S LYMPHOMA
     Dosage: SEE IMAGE, INTRAVENOUS
     Route: 042
     Dates: start: 20040511, end: 20040511
  3. ZEVALIN [Suspect]
     Indication: NON-HODGKIN'S LYMPHOMA
     Dosage: SEE IMAGE, INTRAVENOUS
     Route: 042
     Dates: start: 20040525, end: 20040525
  4. ZEVALIN [Suspect]
     Indication: NON-HODGKIN'S LYMPHOMA
     Dosage: SEE IMAGE, INTRAVENOUS
     Route: 042
     Dates: start: 20040511, end: 20040511
  5. ZEVALIN [Suspect]
     Indication: NON-HODGKIN'S LYMPHOMA
     Dosage: SEE IMAGE, INTRAVENOUS
     Route: 042
     Dates: start: 20040525, end: 20040525
  6. CYCLOPHOSPHAMIDE [Concomitant]
  7. NEUPOGEN [Concomitant]
  8. VALTREX [Concomitant]
  9. PREDNISONE [Concomitant]
  10. NORFLURANE (NORFLURANE) [Concomitant]
  11. DIFLUCAN [Concomitant]
  12. ANZEMET (DOLASETRON MESILATE) [Concomitant]
  13. ATIVAN [Concomitant]
  14. HUMALOG [Concomitant]
  15. LANTUS [Concomitant]
  16. ACETAMINOPHEN [Concomitant]
  17. DIPHENHYDRAMINE HCL [Concomitant]

REACTIONS (16)
  - ALANINE AMINOTRANSFERASE INCREASED [None]
  - ASPARTATE AMINOTRANSFERASE INCREASED [None]
  - BRONCHOPNEUMONIA [None]
  - COMA [None]
  - CONDITION AGGRAVATED [None]
  - CORONARY ARTERY ATHEROSCLEROSIS [None]
  - CULTURE POSITIVE [None]
  - FEBRILE NEUTROPENIA [None]
  - HEPATIC CONGESTION [None]
  - LUNG INFILTRATION [None]
  - PLEURAL EFFUSION [None]
  - PNEUMOCYSTIS CARINII PNEUMONIA [None]
  - RESPIRATORY ARREST [None]
  - RESPIRATORY TRACT INFECTION FUNGAL [None]
  - STAPHYLOCOCCAL INFECTION [None]
  - VOMITING [None]
